FAERS Safety Report 17827902 (Version 1)
Quarter: 2020Q2

REPORT INFORMATION
  Report Type: Spontaneous
  Country: US (occurrence: US)
  Receive Date: 20200526
  Receipt Date: 20200526
  Transmission Date: 20200714
  Serious: Yes (Life-Threatening, Hospitalization, Disabling)
  Sender: FDA-Public Use
  Company Number: None

PATIENT
  Age: 67 Year
  Sex: Female
  Weight: 117.7 kg

DRUGS (8)
  1. POTASSIUM CHLORIDE 20MEQ IV [Concomitant]
     Dates: start: 20200523, end: 20200523
  2. AMIODARONE 150MG IV BOLUS ONCE [Concomitant]
     Dates: start: 20200521, end: 20200521
  3. TOCILIZUMAB 400MG IV [Concomitant]
     Dates: start: 20200521, end: 20200521
  4. ACETOMINOPHEN [Concomitant]
     Active Substance: ACETAMINOPHEN
     Dates: start: 20200521
  5. CEFEPIME 2GM IV [Concomitant]
     Dates: start: 20200521, end: 20200521
  6. REMDESIVIR. [Suspect]
     Active Substance: REMDESIVIR
     Indication: SARS-COV-2 TEST POSITIVE
     Route: 041
     Dates: start: 20200523, end: 20200525
  7. DUONEBS [Concomitant]
     Dates: start: 20200521
  8. AZITHROMYCIN 500MG IV ONCE [Concomitant]
     Dates: start: 20200521, end: 20200521

REACTIONS (5)
  - Crystal nephropathy [None]
  - Respiratory disorder [None]
  - Hydronephrosis [None]
  - Renal tubular necrosis [None]
  - Urine analysis abnormal [None]

NARRATIVE: CASE EVENT DATE: 20200526
